FAERS Safety Report 17052733 (Version 1)
Quarter: 2019Q4

REPORT INFORMATION
  Report Type: Spontaneous
  Country: US (occurrence: US)
  Receive Date: 20191120
  Receipt Date: 20191120
  Transmission Date: 20200122
  Serious: Yes (Other)
  Sender: FDA-Public Use
  Company Number: US-MYLANLABS-2019M1109936

PATIENT
  Sex: Female
  Weight: 59 kg

DRUGS (2)
  1. ATENOLOL. [Concomitant]
     Active Substance: ATENOLOL
     Dosage: UNK
  2. CHLORTHALIDONE TABLETS USP [Suspect]
     Active Substance: CHLORTHALIDONE
     Indication: BLOOD PRESSURE MANAGEMENT
     Dosage: UNK
     Route: 048

REACTIONS (8)
  - Hypertension [Recovered/Resolved]
  - Lip injury [Recovered/Resolved]
  - Nasal oedema [Recovered/Resolved]
  - Face injury [Recovered/Resolved]
  - Fall [Recovered/Resolved]
  - Diarrhoea [Recovered/Resolved]
  - Loss of consciousness [Recovered/Resolved]
  - Dehydration [Recovered/Resolved]

NARRATIVE: CASE EVENT DATE: 2019
